FAERS Safety Report 20816008 (Version 1)
Quarter: 2022Q2

REPORT INFORMATION
  Report Type: Spontaneous
  Country: US (occurrence: US)
  Receive Date: 20220511
  Receipt Date: 20220511
  Transmission Date: 20220721
  Serious: No
  Sender: FDA-Public Use
  Company Number: US-CELGENE-USA-20220304101

PATIENT
  Age: 81 Year
  Sex: Female

DRUGS (2)
  1. POMALYST [Suspect]
     Active Substance: POMALIDOMIDE
     Indication: Hypomagnesaemia
     Dosage: 4 MILLIGRAM
     Route: 048
     Dates: start: 20220201
  2. POMALYST [Suspect]
     Active Substance: POMALIDOMIDE
     Dosage: TAKE 1 CAPSULE BY MOUTH DAILY ON DAYS 1-21 THEN OFF ON DAYS 22- 28
     Route: 048
     Dates: start: 20160607

REACTIONS (4)
  - Malaise [Recovered/Resolved]
  - Product dose omission issue [Unknown]
  - Product distribution issue [Unknown]
  - Intentional product use issue [Unknown]

NARRATIVE: CASE EVENT DATE: 20220101
